FAERS Safety Report 14631057 (Version 2)
Quarter: 2018Q2

REPORT INFORMATION
  Report Type: Report from Study
  Country: US (occurrence: US)
  Receive Date: 20180313
  Receipt Date: 20180614
  Transmission Date: 20180711
  Serious: No
  Sender: FDA-Public Use
  Company Number: PHEH2018US009851

PATIENT
  Age: 34 Year
  Sex: Male

DRUGS (1)
  1. GILENYA [Suspect]
     Active Substance: FINGOLIMOD HYDROCHLORIDE
     Indication: MULTIPLE SCLEROSIS
     Dosage: 0.5 MG (1 DF), QD
     Route: 048
     Dates: start: 20180206

REACTIONS (12)
  - Fall [Unknown]
  - Mobility decreased [Not Recovered/Not Resolved]
  - Visual impairment [Not Recovered/Not Resolved]
  - Depression [Unknown]
  - Balance disorder [Unknown]
  - Altered visual depth perception [Not Recovered/Not Resolved]
  - Photophobia [Not Recovered/Not Resolved]
  - Fatigue [Unknown]
  - Concomitant disease aggravated [Not Recovered/Not Resolved]
  - Asthenia [Unknown]
  - Vision blurred [Unknown]
  - Confusional state [Unknown]

NARRATIVE: CASE EVENT DATE: 20180227
